FAERS Safety Report 22602419 (Version 2)
Quarter: 2023Q2

REPORT INFORMATION
  Report Type: Spontaneous
  Country: US (occurrence: US)
  Receive Date: 20230614
  Receipt Date: 20230628
  Transmission Date: 20230721
  Serious: Yes (Other)
  Sender: FDA-Public Use
  Company Number: US-TEVA-2023-US-2895964

PATIENT
  Age: 65 Year
  Sex: Male

DRUGS (9)
  1. TRIAMCINOLONE ACETONIDE [Suspect]
     Active Substance: TRIAMCINOLONE ACETONIDE
     Indication: Retinopathy
     Dosage: A TOTAL OF THREE DOSES WERE ADMINISTERED BILATERALLY 3 MONTHS APART AROUND MONTHS 3, 6, AND 9
     Route: 031
  2. PEMBROLIZUMAB [Suspect]
     Active Substance: PEMBROLIZUMAB
     Indication: Metastatic malignant melanoma
     Route: 065
  3. ENTINOSTAT [Suspect]
     Active Substance: ENTINOSTAT
     Indication: Metastatic malignant melanoma
     Route: 065
  4. PREDNISONE [Concomitant]
     Active Substance: PREDNISONE
     Indication: Retinopathy
     Dosage: 5MG
     Route: 050
  5. PREDNISONE [Concomitant]
     Active Substance: PREDNISONE
     Dosage: 60MG
     Route: 050
  6. HUMAN IMMUNOGLOBULIN G [Concomitant]
     Active Substance: HUMAN IMMUNOGLOBULIN G
     Indication: Retinopathy
     Route: 042
  7. RITUXAN [Concomitant]
     Active Substance: RITUXIMAB
     Indication: Retinopathy
     Dosage: 3 DOSES TOTAL
     Route: 065
  8. INTERFERON [Concomitant]
     Active Substance: INTERFERON
     Indication: Retinopathy
     Route: 042
  9. INTERFERON [Concomitant]
     Active Substance: INTERFERON
     Route: 058

REACTIONS (2)
  - Cataract [Recovered/Resolved]
  - Drug ineffective [Unknown]
